FAERS Safety Report 8505426-2 (Version None)
Quarter: 2012Q2

REPORT INFORMATION
  Report Type: 
  Country: None (occurrence: None)
  Receive Date: 20120405
  Receipt Date: 20091026
  Transmission Date: 20120825
  Serious: Yes (Hospitalization)
  Sender: FDA-Public Use
  Company Number: PHEH2009US13517

PATIENT
  Sex: Female

DRUGS (1)
  1. RECLAST [Suspect]
     Dosage: INFUSION
     Dates: start: 20090925

REACTIONS (4)
  - MUSCLE SPASMS [None]
  - HYPOCALCAEMIA [None]
  - TETANY [None]
  - PARAESTHESIA ORAL [None]
